FAERS Safety Report 7952975-1 (Version None)
Quarter: 2011Q4

REPORT INFORMATION
  Report Type: 
  Country: None (occurrence: None)
  Receive Date: 20111201
  Receipt Date: 20111128
  Transmission Date: 20120403
  Serious: Yes (Hospitalization)
  Sender: FDA-Public Use
  Company Number: PHEH2011US010372

PATIENT
  Sex: Female

DRUGS (1)
  1. GLEEVEC [Suspect]
     Indication: CONNECTIVE TISSUE NEOPLASM
     Dosage: 400 MG, QD
     Route: 048
     Dates: start: 20111122

REACTIONS (1)
  - CYSTITIS [None]
